FAERS Safety Report 24614208 (Version 1)
Quarter: 2024Q4

REPORT INFORMATION
  Report Type: Spontaneous
  Country: FR (occurrence: FR)
  Receive Date: 20241113
  Receipt Date: 20241113
  Transmission Date: 20250115
  Serious: Yes (Life-Threatening)
  Sender: TEVA
  Company Number: None

PATIENT
  Age: 89 Year
  Sex: Female
  Weight: 82 kg

DRUGS (2)
  1. CEFTRIAXONE [Suspect]
     Active Substance: CEFTRIAXONE
     Indication: Endocarditis
     Dosage: 1 G 2 TIMES/DAY, CEFTRIAXONE BASE
     Route: 065
     Dates: start: 20240920, end: 20240925
  2. AMOXICILLIN [Suspect]
     Active Substance: AMOXICILLIN
     Indication: Endocarditis
     Dosage: 1 G X 4/DAY
     Route: 065
     Dates: start: 20240920, end: 20240925

REACTIONS (3)
  - Encephalopathy [Recovered/Resolved]
  - Epilepsy [Recovered/Resolved]
  - Drug level increased [Recovered/Resolved]

NARRATIVE: CASE EVENT DATE: 20240926
